FAERS Safety Report 6093030-8 (Version None)
Quarter: 2009Q1

REPORT INFORMATION
  Report Type: 
  Country: None (occurrence: None)
  Receive Date: 20090224
  Receipt Date: 20090210
  Transmission Date: 20090719
  Serious: Yes (Death, Hospitalization)
  Sender: FDA-Public Use
  Company Number: 2009000392

PATIENT
  Age: 82 Year
  Sex: Female

DRUGS (7)
  1. ERLOTINIB (ERLOTINIB) (TABLET) (ERLOTINIB) [Suspect]
     Indication: LUNG ADENOCARCINOMA
     Dosage: 150 MG, QD, ORAL
     Route: 048
     Dates: start: 20081119, end: 20081222
  2. RIZE (CLOTIAZEPAM) [Concomitant]
  3. SELBEX (TEPRENONE) [Concomitant]
  4. LANSOPRAZOLE [Concomitant]
  5. DIOVAN [Concomitant]
  6. BETAMETHASONE [Concomitant]
  7. AMOXAPINE [Concomitant]

REACTIONS (6)
  - ANAEMIA [None]
  - BLOOD BILIRUBIN INCREASED [None]
  - BLOOD LACTATE DEHYDROGENASE INCREASED [None]
  - HAPTOGLOBIN INCREASED [None]
  - LUNG ADENOCARCINOMA METASTATIC [None]
  - METASTASES TO BONE MARROW [None]
